FAERS Safety Report 9255562 (Version 2)
Quarter: 2013Q2

REPORT INFORMATION
  Report Type: Spontaneous
  Country: CA (occurrence: CA)
  Receive Date: 20130425
  Receipt Date: 20130503
  Transmission Date: 20140414
  Serious: Yes (Other)
  Sender: FDA-Public Use
  Company Number: CA-GLAXOSMITHKLINE-A1020401A

PATIENT
  Age: 78 Year
  Sex: Female
  Weight: 70.5 kg

DRUGS (6)
  1. ADVAIR [Suspect]
     Indication: EMPHYSEMA
     Dosage: 2PUFF TWICE PER DAY
     Route: 055
     Dates: start: 20130306, end: 20130424
  2. ZOPICLONE [Concomitant]
     Dosage: 2TABS AT NIGHT
  3. LORAZEPAM [Concomitant]
     Dosage: 1TAB TWICE PER DAY
  4. POTASSIUM [Concomitant]
     Dosage: 1TAB PER DAY
  5. HYDROCHLOROTHIAZIDE [Concomitant]
     Dosage: 1TAB PER DAY
  6. ADALAT [Concomitant]
     Dosage: 1TAB PER DAY

REACTIONS (8)
  - Sudden visual loss [Recovered/Resolved]
  - Asthenia [Unknown]
  - Dizziness [Recovering/Resolving]
  - Mydriasis [Not Recovered/Not Resolved]
  - Vision blurred [Recovered/Resolved]
  - Incorrect dose administered [Unknown]
  - Dry mouth [Not Recovered/Not Resolved]
  - Muscle tightness [Not Recovered/Not Resolved]
